FAERS Safety Report 4353966-2 (Version None)
Quarter: 2004Q2

REPORT INFORMATION
  Report Type: 
  Country: None (occurrence: None)
  Receive Date: 20040506
  Receipt Date: 20040225
  Transmission Date: 20050107
  Serious: No
  Sender: FDA-Public Use
  Company Number: US-GLAXOSMITHKLINE-A0499817A

PATIENT
  Age: 67 Year
  Sex: Female

DRUGS (8)
  1. AVANDAMET [Suspect]
     Dosage: 1TAB TWICE PER DAY
     Route: 048
     Dates: start: 20040215
  2. ACCUPRIL [Concomitant]
  3. LEVOXYL [Concomitant]
  4. LIPITOR [Concomitant]
  5. ASPIRIN [Concomitant]
  6. VITAMIN CAP [Concomitant]
  7. FISH OIL [Concomitant]
  8. CALCIUM [Concomitant]

REACTIONS (1)
  - BLOOD GLUCOSE INCREASED [None]
